FAERS Safety Report 9395966 (Version 1)
Quarter: 2013Q3

REPORT INFORMATION
  Report Type: Spontaneous
  Country: US (occurrence: US)
  Receive Date: 20130711
  Receipt Date: 20130711
  Transmission Date: 20140515
  Serious: No
  Sender: FDA-Public Use
  Company Number: US-PFIZER INC-2013204097

PATIENT
  Age: 65 Year
  Sex: Male
  Weight: 100 kg

DRUGS (4)
  1. NEURONTIN [Suspect]
     Indication: NEUROPATHY PERIPHERAL
     Dosage: 600 MG, 2X/DAY
     Dates: start: 2013
  2. NEURONTIN [Suspect]
     Dosage: 900 MG, 2X/DAY
  3. NEURONTIN [Suspect]
     Dosage: 1200 MG, 2X/DAY
  4. IBUPROFEN [Concomitant]
     Dosage: 800 MG, 2X/DAY

REACTIONS (1)
  - Drug ineffective [Unknown]
